FAERS Safety Report 4954867-9 (Version None)
Quarter: 2006Q1

REPORT INFORMATION
  Report Type: 
  Country: None (occurrence: None)
  Receive Date: 20060327
  Receipt Date: 20060323
  Transmission Date: 20060701
  Serious: Yes (Other)
  Sender: FDA-Public Use
  Company Number: US-MERCK-0603USA03704

PATIENT
  Age: 79 Year
  Sex: Female

DRUGS (1)
  1. ZOCOR [Suspect]
     Route: 048
     Dates: end: 20050901

REACTIONS (3)
  - ARTHROPATHY [None]
  - KNEE ARTHROPLASTY [None]
  - PAIN IN EXTREMITY [None]
